FAERS Safety Report 5876273-5 (Version None)
Quarter: 2008Q3

REPORT INFORMATION
  Report Type: 
  Country: None (occurrence: None)
  Receive Date: 20080908
  Receipt Date: 20080825
  Transmission Date: 20090109
  Serious: Yes (Death)
  Sender: FDA-Public Use
  Company Number: 080826-0000640

PATIENT
  Sex: 0

DRUGS (1)
  1. INDOCIN I.V. [Suspect]
     Indication: PATENT DUCTUS ARTERIOSUS
     Dosage: 0.2 MG/KG; QD; IV; 0.1 MG/KG; QD; IV
     Route: 042

REACTIONS (2)
  - INTESTINAL PERFORATION [None]
  - NECROTISING COLITIS [None]
